FAERS Safety Report 7901298-5 (Version None)
Quarter: 2011Q4

REPORT INFORMATION
  Report Type: 
  Country: None (occurrence: None)
  Receive Date: 20111108
  Receipt Date: 20111103
  Transmission Date: 20120403
  Serious: Yes (Other)
  Sender: FDA-Public Use
  Company Number: PHHY2011AU097508

PATIENT
  Sex: Female

DRUGS (1)
  1. ZOLEDRONOC ACID [Suspect]
     Dosage: 5 MG, UNK
     Route: 042
     Dates: start: 20110811

REACTIONS (6)
  - INFLUENZA LIKE ILLNESS [None]
  - CHEST PAIN [None]
  - NAUSEA [None]
  - VOMITING [None]
  - BACK PAIN [None]
  - DIARRHOEA [None]
